FAERS Safety Report 8586603 (Version 3)
Quarter: 2013Q1

REPORT INFORMATION
  Report Type: Spontaneous
  Country: JP (occurrence: JP)
  Receive Date: 20120530
  Receipt Date: 20130102
  Transmission Date: 20140127
  Serious: Yes (Hospitalization)
  Sender: FDA-Public Use
  Company Number: JP-ELI_LILLY_AND_COMPANY-JP201205007199

PATIENT
  Age: 75 Year
  Sex: Male

DRUGS (1)
  1. FORTEO [Suspect]
     Dosage: UNK
     Route: 058
     Dates: end: 20120830

REACTIONS (3)
  - Fracture [Not Recovered/Not Resolved]
  - Surgery [Recovered/Resolved]
  - Decreased activity [Unknown]
